FAERS Safety Report 9750034 (Version 2)
Quarter: 2015Q3

REPORT INFORMATION
  Report Type: Spontaneous
  Country: DE (occurrence: DE)
  Receive Date: 20131212
  Receipt Date: 20150730
  Transmission Date: 20151125
  Serious: No
  Sender: FDA-Public Use
  Company Number: DE-GILEAD-DE-CVT-090666

PATIENT
  Age: 76 Year
  Sex: Male

DRUGS (8)
  1. SIMVASTATIN. [Concomitant]
     Active Substance: SIMVASTATIN
     Route: 048
  2. TORASEMIDE [Concomitant]
     Active Substance: TORSEMIDE
  3. RANEXA [Suspect]
     Active Substance: RANOLAZINE
     Indication: ANGINA PECTORIS
     Route: 048
     Dates: start: 20090620
  4. NEBILET [Concomitant]
     Active Substance: NEBIVOLOL
     Route: 048
  5. RASILEZ [Concomitant]
     Active Substance: ALISKIREN
     Route: 048
  6. MOLSIDOMINE [Concomitant]
     Active Substance: MOLSIDOMINE
     Route: 048
  7. MONOCLAIR [Concomitant]
     Route: 048
  8. MARCUMAR [Concomitant]
     Active Substance: PHENPROCOUMON
     Route: 048

REACTIONS (1)
  - Headache [Recovered/Resolved]

NARRATIVE: CASE EVENT DATE: 20090620
